FAERS Safety Report 8384013-3 (Version None)
Quarter: 2012Q2

REPORT INFORMATION
  Report Type: 
  Country: None (occurrence: None)
  Receive Date: 20120524
  Receipt Date: 20120518
  Transmission Date: 20120825
  Serious: Yes (Death)
  Sender: FDA-Public Use
  Company Number: CA-ROCHE-1071503

PATIENT
  Sex: Female
  Weight: 63.56 kg

DRUGS (4)
  1. DECADRON [Concomitant]
  2. HYDROMORPHONE HCL [Concomitant]
  3. XELODA [Suspect]
     Indication: COLORECTAL CANCER METASTATIC
     Route: 048
  4. PANTOPRAZOLE SODIUM [Concomitant]

REACTIONS (1)
  - DEATH [None]
